FAERS Safety Report 6269064-7 (Version None)
Quarter: 2009Q3

REPORT INFORMATION
  Report Type: 
  Country: None (occurrence: None)
  Receive Date: 20090715
  Receipt Date: 20090703
  Transmission Date: 20100115
  Serious: Yes (Hospitalization)
  Sender: FDA-Public Use
  Company Number: US-PFIZER INC-2009215537

PATIENT
  Sex: Male
  Weight: 91.156 kg

DRUGS (15)
  1. SUNITINIB MALATE [Suspect]
     Indication: PANCREATIC CARCINOMA
     Dosage: 37.5 MG, 1X/DAY
     Route: 048
     Dates: start: 20090415, end: 20090527
  2. IXABEPILONE [Suspect]
     Indication: PANCREATIC CARCINOMA
     Dosage: 33 MG, DAY 1, 8, 15
     Route: 041
     Dates: start: 20090415, end: 20090527
  3. ASCORBIC ACID [Concomitant]
     Dosage: UNK
  4. FRAGMIN [Concomitant]
     Dosage: 18000 UNK, 1X/DAY
     Route: 058
  5. NEXIUM [Concomitant]
     Dosage: 40 MG, 1X/DAY
     Route: 048
  6. MOTRIN [Concomitant]
     Dosage: 400 MG, 2X/DAY
     Route: 048
  7. COMPAZINE [Concomitant]
     Dosage: 10 MG, AS NEEDED
     Route: 048
  8. CRANBERRY [Concomitant]
     Dosage: 1 TAB, UNK
     Route: 048
  9. MAGNESIUM [Concomitant]
     Dosage: 500 MG, 2X/DAY
     Route: 048
  10. NADOLOL [Concomitant]
     Dosage: 10 MG, 1X/DAY
  11. DUONEB [Concomitant]
     Dosage: 3 ML, Q 6 HRS, PRN
  12. AZITHROMYCIN [Concomitant]
     Dosage: 500 MG, 7 DAY COURSE
     Route: 048
  13. ZOFRAN [Concomitant]
     Dosage: 4 MG, AS NEEDED (Q6HRS)
  14. PERCOCET [Concomitant]
     Dosage: 2 TABLETS, 5/325, Q6HRS, PRN
  15. AMBIEN [Concomitant]
     Dosage: 10 MG, UNK

REACTIONS (10)
  - ABDOMINAL PAIN [None]
  - DUODENAL STENOSIS [None]
  - DUODENAL ULCER [None]
  - GASTRIC HAEMORRHAGE [None]
  - HAEMATOCHEZIA [None]
  - HAEMOGLOBIN DECREASED [None]
  - PLEURAL EFFUSION [None]
  - PNEUMONIA [None]
  - PYREXIA [None]
  - VARICES OESOPHAGEAL [None]
